FAERS Safety Report 8333968-1 (Version None)
Quarter: 2012Q2

REPORT INFORMATION
  Report Type: 
  Country: None (occurrence: None)
  Receive Date: 20120503
  Receipt Date: 20120423
  Transmission Date: 20120825
  Serious: Yes (Hospitalization)
  Sender: FDA-Public Use
  Company Number: DE-ACTELION-A-CH2012-64322

PATIENT
  Age: 14 Year
  Sex: Female

DRUGS (4)
  1. GABAPENTIN [Concomitant]
  2. ZAVESCA [Suspect]
     Indication: NIEMANN-PICK DISEASE
     Dosage: UNK , UNK
     Route: 048
  3. BACLOFEN [Concomitant]
  4. ZAVESCA [Suspect]
     Dosage: UNK
     Route: 048
     Dates: start: 20120326

REACTIONS (17)
  - TREMOR [None]
  - GAIT DISTURBANCE [None]
  - DYSPNOEA [None]
  - HEADACHE [None]
  - CONDITION AGGRAVATED [None]
  - FALL [None]
  - BLADDER PAIN [None]
  - MUSCULAR WEAKNESS [None]
  - FEAR [None]
  - DIZZINESS [None]
  - SLEEP DISORDER [None]
  - FATIGUE [None]
  - ASTHENIA [None]
  - CLONUS [None]
  - RESTLESSNESS [None]
  - WALKING DISABILITY [None]
  - FEELING OF BODY TEMPERATURE CHANGE [None]
